FAERS Safety Report 8921121 (Version 4)
Quarter: 2013Q2

REPORT INFORMATION
  Report Type: Spontaneous
  Country: JP (occurrence: JP)
  Receive Date: 20121121
  Receipt Date: 20130411
  Transmission Date: 20140414
  Serious: Yes (Hospitalization)
  Sender: FDA-Public Use
  Company Number: JP-OTSUKA-JP-2012-16875

PATIENT
  Age: 87 Year
  Sex: Male
  Weight: 45 kg

DRUGS (9)
  1. SAMSCA [Suspect]
     Indication: CARDIAC FAILURE
     Dosage: 7.5 MG MILLIGRAM(S), QD
     Route: 048
     Dates: start: 20121101, end: 20121105
  2. KAKODIN [Concomitant]
     Indication: CARDIAC FAILURE
     Dosage: 100 MG MILLIGRAM(S), QD
     Route: 042
     Dates: start: 20120914
  3. DOBUTAMINE [Concomitant]
     Indication: CARDIAC FAILURE
     Dosage: 100 MG MILLIGRAM(S), QD
     Route: 042
     Dates: start: 20120914
  4. MEXITIL [Concomitant]
     Indication: VENTRICULAR EXTRASYSTOLES
     Dosage: 100 MG MILLIGRAM(S), BID
     Route: 048
     Dates: start: 20120914
  5. FRANDOL S [Concomitant]
     Indication: CARDIAC FAILURE
     Dosage: 40 MG MILLIGRAM(S), QD
     Route: 061
     Dates: start: 20120914
  6. SIGMART [Concomitant]
     Indication: CARDIAC FAILURE
     Dosage: 5 MG MILLIGRAM(S), TID
     Route: 048
     Dates: start: 20120914
  7. PROCYLIN [Concomitant]
     Indication: PERIPHERAL ARTERIAL OCCLUSIVE DISEASE
     Dosage: 20 MCG, TID
     Route: 048
     Dates: start: 20120914
  8. ZYLORIC [Concomitant]
     Indication: HYPERURICAEMIA
     Dosage: 100 MG MILLIGRAM(S), QD
     Route: 048
     Dates: start: 20120914
  9. CALBLOCK [Concomitant]
     Indication: HYPERTENSION
     Dosage: 16 MG MILLIGRAM(S), QD
     Route: 048
     Dates: start: 20120914

REACTIONS (5)
  - Altered state of consciousness [Recovered/Resolved]
  - Dehydration [Recovered/Resolved]
  - Blood urea increased [Recovered/Resolved]
  - Blood potassium increased [Recovered/Resolved]
  - Blood creatinine increased [Recovered/Resolved]
